FAERS Safety Report 5166015-3 (Version None)
Quarter: 2006Q4

REPORT INFORMATION
  Report Type: 
  Country: None (occurrence: None)
  Receive Date: 20061128
  Receipt Date: 20061117
  Transmission Date: 20070319
  Serious: Yes (Hospitalization)
  Sender: FDA-Public Use
  Company Number: GXBR2006US02071

PATIENT
  Age: 51 Year
  Sex: Female
  Weight: 75.3 kg

DRUGS (1)
  1. BROMERGON [Suspect]
     Indication: BRAIN TUMOUR OPERATION
     Dosage: 2.5 MG, QHS, ORAL
     Route: 048

REACTIONS (1)
  - CEREBROVASCULAR ACCIDENT [None]
